FAERS Safety Report 6282368-7 (Version None)
Quarter: 2009Q3

REPORT INFORMATION
  Report Type: 
  Country: None (occurrence: None)
  Receive Date: 20090721
  Receipt Date: 20090721
  Transmission Date: 20100115
  Serious: No
  Sender: FDA-Public Use
  Company Number: None

PATIENT
  Sex: Female
  Weight: 50 kg

DRUGS (2)
  1. CELLCEPT [Suspect]
     Indication: GRAFT VERSUS HOST DISEASE
     Dosage: 750 MG Q 12 HRS IV BOLUS
     Route: 040
     Dates: start: 20090720, end: 20090720
  2. DEXTROSE 5% [Suspect]
     Dosage: 150 ML Q 12 HRS IV BOLUS
     Route: 040

REACTIONS (1)
  - PRODUCT QUALITY ISSUE [None]
